FAERS Safety Report 21727547 (Version 1)
Quarter: 2022Q4

REPORT INFORMATION
  Report Type: Spontaneous
  Country: US (occurrence: US)
  Receive Date: 20221214
  Receipt Date: 20221214
  Transmission Date: 20230113
  Serious: No
  Sender: FDA-Public Use
  Company Number: US-ALVOGEN-2022-ALVOGEN-120388

PATIENT
  Age: 69 Year
  Sex: Male

DRUGS (3)
  1. BUPRENORPHINE\NALOXONE [Suspect]
     Active Substance: BUPRENORPHINE\NALOXONE
     Indication: Drug use disorder
     Route: 060
  2. HEROIN [Concomitant]
     Active Substance: DIAMORPHINE
     Indication: Drug abuse
     Dosage: 6 BAGS OF INHALED HEROIN TWICE A WEEK.
  3. FENTANYL [Concomitant]
     Active Substance: FENTANYL
     Indication: Drug abuse

REACTIONS (1)
  - Therapeutic response decreased [Unknown]
